FAERS Safety Report 6299221-5 (Version None)
Quarter: 2009Q3

REPORT INFORMATION
  Report Type: 
  Country: None (occurrence: None)
  Receive Date: 20090803
  Receipt Date: 20090723
  Transmission Date: 20100115
  Serious: No
  Sender: FDA-Public Use
  Company Number: 20097157

PATIENT
  Sex: Male
  Weight: 78 kg

DRUGS (4)
  1. BACLOFEN [Suspect]
     Indication: MUSCLE SPASTICITY
     Dosage: 50 - 250 MCG, DAILY, INTRATHECAL - S
     Route: 037
     Dates: start: 20080227
  2. LIORESAL [Concomitant]
  3. MAGNESIUM OXIDE [Concomitant]
  4. XYLOCAINE [Concomitant]

REACTIONS (4)
  - ASTHENIA [None]
  - HYPOAESTHESIA [None]
  - NEUROPATHY PERIPHERAL [None]
  - PAIN [None]
